FAERS Safety Report 9715339 (Version 1)
Quarter: 2013Q4

REPORT INFORMATION
  Report Type: Spontaneous
  Country: CH (occurrence: CH)
  Receive Date: 20131127
  Receipt Date: 20131127
  Transmission Date: 20140711
  Serious: Yes (Other)
  Sender: FDA-Public Use
  Company Number: CH-AMGEN-CHESP2013082328

PATIENT
  Age: 68 Year
  Sex: Male

DRUGS (2)
  1. NPLATE [Suspect]
     Indication: IMMUNE THROMBOCYTOPENIC PURPURA
     Dosage: UNK
     Route: 058
     Dates: start: 201209
  2. CORTICOSTEROIDS [Concomitant]
     Dosage: UNK
     Route: 065
     Dates: start: 201206

REACTIONS (2)
  - Drug administration error [Recovered/Resolved]
  - Circumstance or information capable of leading to medication error [Recovering/Resolving]
